FAERS Safety Report 22820407 (Version 3)
Quarter: 2023Q4

REPORT INFORMATION
  Report Type: Report from Study
  Country: CN (occurrence: CN)
  Receive Date: 20230814
  Receipt Date: 20231219
  Transmission Date: 20240109
  Serious: Yes (Other)
  Sender: FDA-Public Use
  Company Number: CN-FOSUNKITE-FOSUNKITE-20230340

PATIENT
  Age: 41 Year
  Sex: Female

DRUGS (7)
  1. AXICABTAGENE CILOLEUCEL [Suspect]
     Active Substance: AXICABTAGENE CILOLEUCEL
     Indication: Non-Hodgkin^s lymphoma
     Dosage: 1.1*10^8 CELLS (NUMBER OF CAR-T CELLS)
     Route: 042
     Dates: start: 20230214, end: 20230214
  2. CYCLOPHOSPHAMIDE [Suspect]
     Active Substance: CYCLOPHOSPHAMIDE
     Indication: Lymphodepletion
     Dosage: 780.00 MG
     Route: 041
     Dates: start: 20230209, end: 20230211
  3. FLUDARABINE PHOSPHATE [Suspect]
     Active Substance: FLUDARABINE PHOSPHATE
     Indication: Lymphodepletion
     Dosage: 46.8 MG
     Route: 041
     Dates: start: 20230209, end: 20230211
  4. ZANUBRUTINIB [Concomitant]
     Active Substance: ZANUBRUTINIB
     Indication: Non-Hodgkin^s lymphoma
     Dosage: UNKNOWN ACCUMULATED DOSE, UNKNOWN TREATMENT CYCLE
     Route: 048
     Dates: start: 20230224
  5. ZANUBRUTINIB [Concomitant]
     Active Substance: ZANUBRUTINIB
     Dosage: UNKNOWN ACCUMULATED DOSE, UNKNOWN TREATMENT CYCLE
     Dates: start: 20221123
  6. ZANUBRUTINIB [Concomitant]
     Active Substance: ZANUBRUTINIB
     Dosage: UNKNOWN ACCUMULATED DOSE, UNKNOWN TREATMENT CYCLE
     Route: 048
     Dates: start: 20230214
  7. ZANUBRUTINIB [Concomitant]
     Active Substance: ZANUBRUTINIB
     Dosage: UNKNOWN ACCUMULATED DOSE, UNKNOWN TREATMENT CYCLE
     Route: 048
     Dates: start: 20221117, end: 20230214

REACTIONS (29)
  - Hypokalaemia [Not Recovered/Not Resolved]
  - Cytokine release syndrome [Recovered/Resolved]
  - Anaemia [Not Recovered/Not Resolved]
  - Chest discomfort [Recovered/Resolved]
  - Chest discomfort [Recovered/Resolved]
  - Aspartate aminotransferase increased [Recovered/Resolved]
  - White blood cell count decreased [Not Recovered/Not Resolved]
  - Hypomagnesaemia [Not Recovered/Not Resolved]
  - Platelet count decreased [Not Recovered/Not Resolved]
  - Chest pain [Recovered/Resolved]
  - N-terminal prohormone brain natriuretic peptide increased [Recovered/Resolved]
  - Lymphocyte count decreased [Not Recovered/Not Resolved]
  - Asthenia [Recovered/Resolved]
  - Neutrophil count decreased [Not Recovered/Not Resolved]
  - Alanine aminotransferase increased [Recovered/Resolved]
  - Cytokine increased [Recovered/Resolved]
  - Pain in extremity [Not Recovered/Not Resolved]
  - Neck pain [Recovered/Resolved]
  - Chest pain [Recovered/Resolved]
  - Back pain [Recovered/Resolved]
  - Skin injury [Not Recovered/Not Resolved]
  - Oedema peripheral [Not Recovered/Not Resolved]
  - Insomnia [Recovered/Resolved]
  - Pain [Recovered/Resolved]
  - Nausea [Recovered/Resolved]
  - Blister [Not Recovered/Not Resolved]
  - Medical device site rash [Not Recovered/Not Resolved]
  - Chest discomfort [Recovered/Resolved]
  - Chest pain [Recovered/Resolved]

NARRATIVE: CASE EVENT DATE: 20230215
